FAERS Safety Report 4802448-X (Version None)
Quarter: 2005Q4

REPORT INFORMATION
  Report Type: 
  Country: None (occurrence: None)
  Receive Date: 20051011
  Receipt Date: 20050929
  Transmission Date: 20060501
  Serious: Yes (Other)
  Sender: FDA-Public Use
  Company Number: 2005136459

PATIENT
  Age: 73 Year
  Sex: Female
  Weight: 136.0791 kg

DRUGS (2)
  1. NORVASC [Suspect]
     Indication: ILL-DEFINED DISORDER
  2. CELEBREX [Suspect]
     Indication: ILL-DEFINED DISORDER

REACTIONS (3)
  - BONE DISORDER [None]
  - KNEE ARTHROPLASTY [None]
  - PAIN IN EXTREMITY [None]
